FAERS Safety Report 24621404 (Version 1)
Quarter: 2024Q4

REPORT INFORMATION
  Report Type: Spontaneous
  Country: US (occurrence: US)
  Receive Date: 20241114
  Receipt Date: 20241114
  Transmission Date: 20250115
  Serious: No
  Sender: COVIS PHARMA GMBH
  Company Number: US-Covis Pharma GmbH-2024COV01243

PATIENT
  Age: 73 Year
  Sex: Male

DRUGS (1)
  1. ALVESCO [Suspect]
     Active Substance: CICLESONIDE
     Route: 055

REACTIONS (2)
  - Illness [Recovered/Resolved]
  - Incorrect dose administered by product [Recovered/Resolved]

NARRATIVE: CASE EVENT DATE: 20241005
